FAERS Safety Report 7117860-6 (Version None)
Quarter: 2010Q4

REPORT INFORMATION
  Report Type: 
  Country: None (occurrence: None)
  Receive Date: 20101118
  Receipt Date: 20101118
  Transmission Date: 20110411
  Serious: Yes (Hospitalization)
  Sender: FDA-Public Use
  Company Number: None

PATIENT
  Sex: Female

DRUGS (2)
  1. OMEPRAZOLE [Suspect]
     Dosage: 20MG BID ORALLY
     Route: 048
     Dates: start: 20080201
  2. OMEPRAZOLE [Suspect]
     Dosage: 20MG BID ORALLY
     Route: 048
     Dates: start: 20090701

REACTIONS (2)
  - APHASIA [None]
  - DYSKINESIA [None]
